FAERS Safety Report 16121390 (Version 1)
Quarter: 2019Q1

REPORT INFORMATION
  Report Type: Spontaneous
  Country: US (occurrence: US)
  Receive Date: 20190222
  Receipt Date: 20190222
  Transmission Date: 20190418
  Serious: Yes (Disabling, Other)
  Sender: FDA-Public Use
  Company Number: None

PATIENT
  Age: 80 Year
  Sex: Female
  Weight: 65.77 kg

DRUGS (31)
  1. ZETIA [Concomitant]
     Active Substance: EZETIMIBE
  2. CO-ENZYME Q10 (UBIQUINONE) - 300MG 1 X DAILY [Concomitant]
  3. CYCLOBENZAPRINE 5 MG [Concomitant]
     Active Substance: CYCLOBENZAPRINE HYDROCHLORIDE
  4. STRONTIUM (CITRATE) 227MG 3 XDAILY [Concomitant]
  5. POLICOSANOL - 10MG [Concomitant]
  6. MERCURY [Concomitant]
     Active Substance: MERCURY
  7. VITAMIN C [Concomitant]
     Active Substance: ASCORBIC ACID
  8. LOSARTAN POTASSIUM 25MG [Concomitant]
     Active Substance: LOSARTAN POTASSIUM
  9. FLUITICASONE PROPIONATE [Concomitant]
  10. PROLIA [Concomitant]
     Active Substance: DENOSUMAB
  11. D-BIOTIN 2.5MG DAILY [Concomitant]
  12. ESTRADIOL TRANSDERMAL PATCH .025MG [Concomitant]
  13. IPRATROPIUM BROMIDE NASAL SOLUTION .03% [Concomitant]
  14. WELCHOL 625MG [Concomitant]
  15. METAMUCIL [Concomitant]
     Active Substance: PLANTAGO SEED
  16. B-12 (CYANOCOBALAMIN) 1000MG DAILY [Concomitant]
  17. CITRICAL MAX CALCIUM CITRATE 630MG [Concomitant]
     Active Substance: CALCIUM CITRATE
  18. PENICILLIN [Concomitant]
     Active Substance: PENICILLIN
  19. LEVOTHYROXINE 0088 MG [Concomitant]
  20. ACETYL L-CARNITINE (FROM - HCL) 500MG DAILY [Concomitant]
  21. GUAIFENISIN 400 MG [Concomitant]
  22. IBUPROFEN 200MG [Concomitant]
     Active Substance: IBUPROFEN
  23. METATOPROL SUCCINATE XI 25MG [Concomitant]
  24. ALBUTEROL PROAIR HFA [Concomitant]
  25. MULTIVITAMINS + MINERAL [Concomitant]
  26. VITAMIN D3 CAPSULE 1/DAY [Concomitant]
  27. PROLIA [Suspect]
     Active Substance: DENOSUMAB
     Indication: OSTEOPOROSIS
     Dosage: ?          OTHER FREQUENCY:1 EVERY 6 MONTHS;?
     Route: 042
     Dates: start: 20180503, end: 20181126
  28. PRAVASTATIN 40 MG [Concomitant]
     Active Substance: PRAVASTATIN
  29. FLURAZEPAM HCL 15MG [Concomitant]
  30. SALMON OIL [Concomitant]
     Active Substance: FISH OIL
  31. BABY ASPIRIN 162MG [Concomitant]

REACTIONS (5)
  - Muscle spasms [None]
  - Gait disturbance [None]
  - Contusion [None]
  - Balance disorder [None]
  - Fall [None]

NARRATIVE: CASE EVENT DATE: 20180506
